FAERS Safety Report 7738472-7 (Version None)
Quarter: 2011Q3

REPORT INFORMATION
  Report Type: 
  Country: None (occurrence: None)
  Receive Date: 20110908
  Receipt Date: 20110828
  Transmission Date: 20111222
  Serious: Yes (Death, Hospitalization)
  Sender: FDA-Public Use
  Company Number: IN-BAXTER-2011BH028007

PATIENT
  Age: 77 Year
  Sex: Male

DRUGS (1)
  1. DIANEAL PD-2 W/ DEXTROSE 1.5% [Suspect]
     Indication: PERITONEAL DIALYSIS
     Route: 033
     Dates: start: 20110701

REACTIONS (3)
  - CARDIAC ARREST [None]
  - PERITONEAL DIALYSIS COMPLICATION [None]
  - INFECTIOUS PERITONITIS [None]
